FAERS Safety Report 17479702 (Version 1)
Quarter: 2020Q1

REPORT INFORMATION
  Report Type: Spontaneous
  Country: US (occurrence: US)
  Receive Date: 20200228
  Receipt Date: 20200228
  Transmission Date: 20200409
  Serious: Yes (Disabling)
  Sender: FDA-Public Use
  Company Number: US-009507513-2002USA008481

PATIENT
  Age: 25 Year
  Sex: Female
  Weight: 54.42 kg

DRUGS (1)
  1. NEXPLANON [Suspect]
     Active Substance: ETONOGESTREL
     Indication: CONTRACEPTION
     Dosage: 1 DOSAGE FORM
     Route: 059
     Dates: start: 20191206, end: 20200219

REACTIONS (2)
  - Complication of device removal [Recovered/Resolved]
  - Implant site infection [Recovering/Resolving]

NARRATIVE: CASE EVENT DATE: 20200211
